FAERS Safety Report 7514167-X (Version None)
Quarter: 2011Q2

REPORT INFORMATION
  Report Type: 
  Country: None (occurrence: None)
  Receive Date: 20110531
  Receipt Date: 20110524
  Transmission Date: 20111010
  Serious: Yes (Death)
  Sender: FDA-Public Use
  Company Number: MX-SANOFI-AVENTIS-2011SA032638

PATIENT
  Age: 65 Year
  Sex: Male

DRUGS (4)
  1. ATORVASTATIN [Concomitant]
     Route: 048
     Dates: start: 19960101, end: 20101215
  2. COZAAR [Concomitant]
     Dates: start: 19910101, end: 20101215
  3. METFORMIN HCL [Concomitant]
     Indication: TYPE 2 DIABETES MELLITUS
     Dates: start: 20090101, end: 20101215
  4. INSULIN GLARGINE [Suspect]
     Indication: TYPE 2 DIABETES MELLITUS
     Route: 058
     Dates: start: 20090101, end: 20101215

REACTIONS (5)
  - HYPERGLYCAEMIA [None]
  - CHEST PAIN [None]
  - HYPERHIDROSIS [None]
  - ANXIETY [None]
  - MYOCARDIAL INFARCTION [None]
